FAERS Safety Report 7405123-0 (Version None)
Quarter: 2011Q2

REPORT INFORMATION
  Report Type: 
  Country: None (occurrence: None)
  Receive Date: 20110411
  Receipt Date: 20110401
  Transmission Date: 20111010
  Serious: Yes (Hospitalization, Disabling)
  Sender: FDA-Public Use
  Company Number: US-US-EMD SERONO, INC.-7014095

PATIENT
  Sex: Male

DRUGS (5)
  1. DETROL [Concomitant]
     Indication: NEUROGENIC BLADDER
  2. KLONOPIN [Concomitant]
     Indication: MUSCLE SPASTICITY
  3. FOSAMAX [Concomitant]
     Indication: OSTEOPOROSIS
  4. ADVIL LIQUI-GELS [Concomitant]
     Indication: PREMEDICATION
  5. REBIF [Suspect]
     Indication: SECONDARY PROGRESSIVE MULTIPLE SCLEROSIS
     Route: 058
     Dates: start: 20050504

REACTIONS (5)
  - SECONDARY PROGRESSIVE MULTIPLE SCLEROSIS [None]
  - INJECTION SITE ERYTHEMA [None]
  - INJECTION SITE PAIN [None]
  - INFLUENZA LIKE ILLNESS [None]
  - MUSCLE SPASMS [None]
